FAERS Safety Report 8320486-X (Version None)
Quarter: 2012Q2

REPORT INFORMATION
  Report Type: 
  Country: None (occurrence: None)
  Receive Date: 20120427
  Receipt Date: 20120427
  Transmission Date: 20120825
  Serious: No
  Sender: FDA-Public Use
  Company Number: None

PATIENT
  Age: 47 Year
  Sex: Male
  Weight: 113.39 kg

DRUGS (1)
  1. PRAVASTATIN [Suspect]
     Indication: BLOOD CHOLESTEROL INCREASED
     Dosage: 20.0 MG
     Route: 048

REACTIONS (4)
  - ERECTILE DYSFUNCTION [None]
  - HEPATIC ENZYME INCREASED [None]
  - MUSCLE SPASMS [None]
  - PAIN IN EXTREMITY [None]
